FAERS Safety Report 18887427 (Version 1)
Quarter: 2021Q1

REPORT INFORMATION
  Report Type: Report from Study
  Country: GB (occurrence: GB)
  Receive Date: 20210212
  Receipt Date: 20210212
  Transmission Date: 20210420
  Serious: Yes (Hospitalization)
  Sender: FDA-Public Use
  Company Number: GB-PFIZER INC-2021139923

PATIENT
  Age: 66 Year
  Sex: Male
  Weight: 88 kg

DRUGS (16)
  1. FLUOROURACIL. [Suspect]
     Active Substance: FLUOROURACIL
     Indication: OESOPHAGEAL ADENOCARCINOMA
     Dosage: 5650 MG
     Route: 042
     Dates: start: 20200703
  2. CO?AMOXICLAV [AMOXICILLIN SODIUM;CLAVULANATE POTASSIUM] [Concomitant]
     Active Substance: AMOXICILLIN\CLAVULANATE POTASSIUM
     Indication: FEBRILE NEUTROPENIA
     Dosage: 625 MG, 1X/0.3 DAY
     Route: 048
     Dates: start: 20200623, end: 20200627
  3. CHLORPHENAMINE [Concomitant]
     Active Substance: CHLORPHENIRAMINE MALEATE
     Indication: INFUSION RELATED REACTION
     Dosage: 10 MG, STAT
     Route: 042
     Dates: start: 20200612, end: 20200612
  4. OMEPRAZOLE. [Concomitant]
     Active Substance: OMEPRAZOLE
     Indication: PROPHYLAXIS
     Dosage: 20 MG, 1X/0.5 DAY
     Route: 048
     Dates: start: 20200606
  5. CODEINE [Concomitant]
     Active Substance: CODEINE
     Dosage: 30 MG, AS NEEDED
     Route: 048
     Dates: start: 20200606, end: 20200609
  6. CALCIUM FOLINATE [Suspect]
     Active Substance: LEUCOVORIN CALCIUM
     Indication: OESOPHAGEAL ADENOCARCINOMA
     Dosage: 460 MG
     Route: 042
     Dates: start: 20200703
  7. DOCETAXEL. [Suspect]
     Active Substance: DOCETAXEL
     Indication: OESOPHAGEAL ADENOCARCINOMA
     Dosage: 110 MG
     Route: 042
     Dates: start: 20200703
  8. AVELUMAB [Suspect]
     Active Substance: AVELUMAB
     Indication: OESOPHAGEAL ADENOCARCINOMA
     Dosage: 944 MG
     Route: 042
     Dates: start: 20200703
  9. CO?AMOXICLAV [AMOXICILLIN SODIUM;CLAVULANATE POTASSIUM] [Concomitant]
     Active Substance: AMOXICILLIN\CLAVULANATE POTASSIUM
     Indication: PYREXIA
     Dosage: 625 MG, 1X/0.3 DAY
     Route: 048
     Dates: start: 20200710, end: 20200714
  10. TAZOCIN [Concomitant]
     Active Substance: PIPERACILLIN SODIUM\TAZOBACTAM SODIUM
     Indication: PYREXIA
     Dosage: 4.5 MG
     Route: 042
     Dates: start: 20200709, end: 20200709
  11. PARACETAMOL [Concomitant]
     Active Substance: ACETAMINOPHEN
     Indication: PAIN
  12. OXALIPLATIN. [Suspect]
     Active Substance: OXALIPLATIN
     Indication: OESOPHAGEAL ADENOCARCINOMA
     Dosage: 180 MG
     Route: 042
     Dates: start: 20200703
  13. TAZOCIN [Concomitant]
     Active Substance: PIPERACILLIN SODIUM\TAZOBACTAM SODIUM
     Indication: FEBRILE NEUTROPENIA
     Dosage: 4.5 MG
     Route: 042
     Dates: start: 20200621, end: 20200623
  14. HYDROCORTISONE. [Concomitant]
     Active Substance: HYDROCORTISONE
     Indication: INFUSION RELATED REACTION
     Dosage: 100 MG, STAT
     Route: 042
     Dates: start: 20200612, end: 20200612
  15. PARACETAMOL [Concomitant]
     Active Substance: ACETAMINOPHEN
     Indication: TOOTHACHE
     Dosage: 500 MG, AS NEEDED
     Route: 048
     Dates: start: 20200606
  16. LOPERAMIDE [Concomitant]
     Active Substance: LOPERAMIDE
     Indication: DIARRHOEA
     Dosage: 2 MG, AS NEEDED
     Route: 048
     Dates: start: 20200621

REACTIONS (1)
  - Anal abscess [Recovered/Resolved]

NARRATIVE: CASE EVENT DATE: 20200719
